FAERS Safety Report 4844162-0 (Version None)
Quarter: 2005Q4

REPORT INFORMATION
  Report Type: 
  Country: None (occurrence: None)
  Receive Date: 20051202
  Receipt Date: 20051121
  Transmission Date: 20060501
  Serious: Yes (Hospitalization)
  Sender: FDA-Public Use
  Company Number: US-JNJFOC-20041105427

PATIENT
  Sex: Male
  Weight: 86.18 kg

DRUGS (4)
  1. INFLIXIMAB [Suspect]
     Route: 042
  2. INFLIXIMAB [Suspect]
     Route: 042
  3. INFLIXIMAB [Suspect]
     Indication: CROHN'S DISEASE
     Dosage: 6 INFUSIONS IN THE YEAR PRIOR TO 09-JUL-02
     Route: 042
  4. AZOTHIPRINE [Concomitant]
     Indication: CROHN'S DISEASE

REACTIONS (1)
  - PERIANAL ABSCESS [None]
